FAERS Safety Report 25771296 (Version 1)
Quarter: 2025Q3

REPORT INFORMATION
  Report Type: Spontaneous
  Country: US (occurrence: US)
  Receive Date: 20250908
  Receipt Date: 20250908
  Transmission Date: 20251021
  Serious: No
  Sender: DOMPE FARMACEUTICI
  Company Number: US-FARMAPROD-202504-1163

PATIENT
  Sex: Female
  Weight: 54.16 kg

DRUGS (24)
  1. OXERVATE [Suspect]
     Active Substance: CENEGERMIN-BKBJ
     Indication: Illness
     Route: 047
     Dates: start: 20250319
  2. OXERVATE [Suspect]
     Active Substance: CENEGERMIN-BKBJ
  3. VITAMINS [Concomitant]
     Active Substance: VITAMINS
  4. PREDNISOLONE-BROMFENAC [Concomitant]
  5. TYLENOL [Concomitant]
     Active Substance: ACETAMINOPHEN
  6. FOSAMAX [Concomitant]
     Active Substance: ALENDRONATE SODIUM
  7. VITAMIN D-400 [Concomitant]
  8. CALCIUM [Concomitant]
     Active Substance: CALCIUM
  9. MINERALS\VITAMINS [Concomitant]
     Active Substance: MINERALS\VITAMINS
  10. MUCINEX [Concomitant]
     Active Substance: GUAIFENESIN
  11. ALLEGRA D-12 HOUR [Concomitant]
     Active Substance: FEXOFENADINE HYDROCHLORIDE\PSEUDOEPHEDRINE HYDROCHLORIDE
  12. MELOXICAM [Concomitant]
     Active Substance: MELOXICAM
  13. SOMATULINE DEPOT [Concomitant]
     Active Substance: LANREOTIDE ACETATE
  14. OMEPRAZOLE [Concomitant]
     Active Substance: OMEPRAZOLE
  15. FLUTICASONE PROPIONATE\SALMETEROL XINAFOATE [Concomitant]
     Active Substance: FLUTICASONE PROPIONATE\SALMETEROL XINAFOATE
  16. METOPROLOL SUCCINATE [Concomitant]
     Active Substance: METOPROLOL SUCCINATE
  17. OFLOXACIN [Concomitant]
     Active Substance: OFLOXACIN
  18. SYSTANE (HYPROMELLOSE 2910 (4000 MPA.S)) [Concomitant]
     Active Substance: HYPROMELLOSE 2910 (4000 MPA.S)
  19. CHOLESTYRAMINE [Concomitant]
     Active Substance: CHOLESTYRAMINE
  20. VALACYCLOVIR [Concomitant]
     Active Substance: VALACYCLOVIR HYDROCHLORIDE
  21. THEOPHYLLINE [Concomitant]
     Active Substance: THEOPHYLLINE
  22. FLUTICASONE PROPIONATE [Concomitant]
     Active Substance: FLUTICASONE PROPIONATE
  23. VENTOLIN HFA [Concomitant]
     Active Substance: ALBUTEROL SULFATE
  24. CALCITONIN SALMON [Concomitant]
     Active Substance: CALCITONIN SALMON

REACTIONS (2)
  - Eye pain [Not Recovered/Not Resolved]
  - Photophobia [Unknown]
